FAERS Safety Report 14747839 (Version 1)
Quarter: 2018Q2

REPORT INFORMATION
  Report Type: Report from Study
  Country: GB (occurrence: DE)
  Receive Date: 20180411
  Receipt Date: 20180411
  Transmission Date: 20180711
  Serious: Yes (Hospitalization)
  Sender: FDA-Public Use
  Company Number: GB-BAYER-RCH-304148

PATIENT
  Age: 60 Year
  Sex: Male

DRUGS (7)
  1. GLUCOBAY [Concomitant]
     Active Substance: ACARBOSE
     Indication: DIABETES MELLITUS
     Dosage: 300 MG (DAILY DOSE), , ORAL
     Route: 048
     Dates: start: 20001212, end: 20010109
  2. BELOC-ZOK [Concomitant]
     Active Substance: METOPROLOL SUCCINATE
     Indication: HYPERTENSION
     Dosage: 1.5 DF (DAILY DOSE), , ORAL
     Route: 048
     Dates: start: 20001212, end: 20010109
  3. ASPIRIN 100 MG [Suspect]
     Active Substance: ASPIRIN
     Indication: COAGULOPATHY
     Dosage: 100 MG (DAILY DOSE), , ORAL
     Route: 048
     Dates: start: 20001212, end: 20010109
  4. EUGLUCON N [Suspect]
     Active Substance: GLYBURIDE
     Indication: DIABETES MELLITUS
     Dosage: 1 DF (DAILY DOSE), , ORAL
     Route: 048
     Dates: start: 20001212, end: 20010106
  5. DELIX [Concomitant]
     Active Substance: RAMIPRIL
     Indication: CARDIAC FAILURE
     Dosage: 5 MG (DAILY DOSE), , ORAL
     Route: 048
     Dates: start: 20001212, end: 20010109
  6. SORTIS [Concomitant]
     Active Substance: ATORVASTATIN
     Indication: HYPERLIPIDAEMIA
     Dosage: 40 MG (DAILY DOSE), , ORAL
     Route: 048
     Dates: start: 20001212, end: 20010109
  7. MUNOBAL [Concomitant]
     Active Substance: FELODIPINE
     Indication: HYPERTENSION
     Dosage: 15 MG (DAILY DOSE), , ORAL
     Route: 048
     Dates: start: 20001212, end: 20010109

REACTIONS (6)
  - Rash [Recovering/Resolving]
  - Burning sensation [Recovering/Resolving]
  - Rash papular [Recovering/Resolving]
  - Conjunctivitis [Recovering/Resolving]
  - Stevens-Johnson syndrome [Recovering/Resolving]
  - Mouth ulceration [Recovering/Resolving]

NARRATIVE: CASE EVENT DATE: 20010105
